FAERS Safety Report 17778519 (Version 3)
Quarter: 2020Q2

REPORT INFORMATION
  Report Type: Report from Study
  Country: US (occurrence: US)
  Receive Date: 20200513
  Receipt Date: 20200617
  Transmission Date: 20200714
  Serious: Yes (Other)
  Sender: FDA-Public Use
  Company Number: US-PFIZER INC-2020110710

PATIENT
  Age: 60 Year
  Sex: Male

DRUGS (4)
  1. SUTENT [Suspect]
     Active Substance: SUNITINIB MALATE
     Indication: METASTASES TO LIVER
  2. FAMOTIDINE. [Concomitant]
     Active Substance: FAMOTIDINE
     Indication: GASTRITIS
     Dosage: UNK
     Dates: end: 20200427
  3. SUTENT [Suspect]
     Active Substance: SUNITINIB MALATE
     Indication: GASTROINTESTINAL STROMAL TUMOUR
     Dosage: 50 MG, CYCLIC (QD, 4 WEEKS ON, 2 WEEKS OFF)
     Route: 048
     Dates: start: 20200305
  4. OMEPRAZOLE. [Concomitant]
     Active Substance: OMEPRAZOLE
     Indication: GASTRITIS
     Dosage: UNK
     Dates: start: 20200427

REACTIONS (20)
  - Hypertension [Unknown]
  - Fatigue [Recovering/Resolving]
  - Faeces discoloured [Unknown]
  - Nervousness [Unknown]
  - Arrhythmia [Unknown]
  - Somnolence [Unknown]
  - Hyperhidrosis [Unknown]
  - Hypoglycaemia [Recovering/Resolving]
  - Dyspepsia [Recovering/Resolving]
  - Haemoglobin decreased [Unknown]
  - Feeling hot [Unknown]
  - Syncope [Unknown]
  - Neoplasm progression [Unknown]
  - Dizziness [Unknown]
  - Hot flush [Unknown]
  - Heart rate irregular [Unknown]
  - Abdominal discomfort [Recovering/Resolving]
  - Asthenia [Unknown]
  - Nausea [Not Recovered/Not Resolved]
  - Night sweats [Recovering/Resolving]

NARRATIVE: CASE EVENT DATE: 2020
